FAERS Safety Report 8295546-2 (Version None)
Quarter: 2012Q2

REPORT INFORMATION
  Report Type: 
  Country: None (occurrence: None)
  Receive Date: 20120418
  Receipt Date: 20120416
  Transmission Date: 20120825
  Serious: Yes (Hospitalization)
  Sender: FDA-Public Use
  Company Number: PHEH2012US003296

PATIENT
  Sex: Female
  Weight: 79.819 kg

DRUGS (10)
  1. HEPARIN [Concomitant]
  2. EPIPEN [Concomitant]
  3. LIPITOR [Concomitant]
     Dosage: 20 MG, UNK
  4. MULTI-VITAMINS [Concomitant]
  5. DIPHENHYDRAMINE HCL [Concomitant]
  6. ZOLOFT [Concomitant]
     Dosage: 100 MG, UNK
  7. CELEBREX [Concomitant]
     Dosage: 200 MG, UNK
  8. COPAXONE [Concomitant]
  9. GILENYA [Suspect]
     Indication: MULTIPLE SCLEROSIS
     Dosage: 0.5 MG, QD
     Route: 048
     Dates: start: 20110701, end: 20111201
  10. GAMMAGARD [Concomitant]

REACTIONS (3)
  - DYSARTHRIA [None]
  - DISORIENTATION [None]
  - GAIT DISTURBANCE [None]
